FAERS Safety Report 6643932-6 (Version None)
Quarter: 2010Q1

REPORT INFORMATION
  Report Type: 
  Country: None (occurrence: None)
  Receive Date: 20100317
  Receipt Date: 20100311
  Transmission Date: 20100710
  Serious: Yes (Life-Threatening, Hospitalization)
  Sender: FDA-Public Use
  Company Number: LTI010A00054

PATIENT
  Age: 51 Year
  Sex: Male

DRUGS (3)
  1. ACTOS               (PIOGLITAZONE) HYDROCHLORIDE) [Suspect]
     Indication: TYPE 2 DIABETES MELLITUS
     Dosage: 30 MG (30 MG ) ORAL
     Route: 048
     Dates: start: 20080901
  2. BYETTA [Suspect]
     Indication: TYPE 2 DIABETES MELLITUS
     Dates: start: 20080901
  3. GLUCOVANCE [Suspect]
     Indication: TYPE 2 DIABETES MELLITUS
     Dates: start: 20080901

REACTIONS (8)
  - ATRIAL FIBRILLATION [None]
  - ESCHAR [None]
  - FALL [None]
  - GASTRODUODENAL HAEMORRHAGE [None]
  - MUSCLE NECROSIS [None]
  - MYOPATHY [None]
  - QUADRIPARESIS [None]
  - SHOCK HAEMORRHAGIC [None]
